FAERS Safety Report 19283174 (Version 4)
Quarter: 2022Q2

REPORT INFORMATION
  Report Type: Report from Study
  Country: US (occurrence: US)
  Receive Date: 20210520
  Receipt Date: 20220429
  Transmission Date: 20220720
  Serious: No
  Sender: FDA-Public Use
  Company Number: NVSC2021US113996

PATIENT
  Age: 70 Year
  Sex: Female

DRUGS (1)
  1. ENTRESTO [Suspect]
     Active Substance: SACUBITRIL\VALSARTAN
     Indication: Product used for unknown indication
     Dosage: 1 DOSAGE FORM, BID
     Route: 048
     Dates: start: 2020

REACTIONS (3)
  - Foot deformity [Unknown]
  - Cough [Recovering/Resolving]
  - Bone disorder [Not Recovered/Not Resolved]

NARRATIVE: CASE EVENT DATE: 20210301
